FAERS Safety Report 5688156-4 (Version None)
Quarter: 2008Q1

REPORT INFORMATION
  Report Type: 
  Country: None (occurrence: None)
  Receive Date: 20080327
  Receipt Date: 20080312
  Transmission Date: 20080703
  Serious: Yes (Hospitalization)
  Sender: FDA-Public Use
  Company Number: 2008S1002568

PATIENT
  Age: 2 Year
  Sex: Male

DRUGS (1)
  1. METOPROLOL TARTRATE [Suspect]
     Indication: DRUG USE FOR UNKNOWN INDICATION
     Dosage: ONCE; ORAL
     Route: 048
     Dates: start: 20080213, end: 20080213

REACTIONS (1)
  - ACCIDENTAL DRUG INTAKE BY CHILD [None]
